FAERS Safety Report 7683557-7 (Version None)
Quarter: 2011Q3

REPORT INFORMATION
  Report Type: 
  Country: None (occurrence: None)
  Receive Date: 20110815
  Receipt Date: 20110804
  Transmission Date: 20111222
  Serious: Yes (Other)
  Sender: FDA-Public Use
  Company Number: FR-JNJFOC-20110803543

PATIENT
  Age: 41 Year
  Sex: Male
  Weight: 102 kg

DRUGS (7)
  1. REMICADE [Suspect]
     Dosage: 5TH INFUSION
     Route: 042
     Dates: start: 20110624
  2. OPTICRON [Concomitant]
     Route: 047
  3. CETIRIZINE HCL [Concomitant]
     Indication: PREMEDICATION
     Dates: start: 20110624
  4. ACETAMINOPHEN [Concomitant]
  5. SOLU-MEDROL [Concomitant]
     Indication: PREMEDICATION
     Dates: start: 20110624
  6. REMICADE [Suspect]
     Indication: SAPHO SYNDROME
     Route: 042
     Dates: start: 20110314
  7. XYZAL [Concomitant]

REACTIONS (5)
  - FOLLICULITIS [None]
  - HYPERTENSION [None]
  - INFUSION RELATED REACTION [None]
  - URTICARIA [None]
  - PAIN [None]
